FAERS Safety Report 8467866-X (Version None)
Quarter: 2012Q2

REPORT INFORMATION
  Report Type: 
  Country: None (occurrence: None)
  Receive Date: 20120626
  Receipt Date: 20120614
  Transmission Date: 20120825
  Serious: No
  Sender: FDA-Public Use
  Company Number: US-ASTRAZENECA-2012SE23508

PATIENT
  Age: 56 Year
  Sex: Female
  Weight: 134.7 kg

DRUGS (12)
  1. SEROQUEL [Suspect]
     Indication: ANXIETY
     Route: 048
  2. SEROQUEL [Suspect]
     Route: 048
  3. SEROQUEL [Suspect]
     Indication: SLEEP DISORDER
     Route: 048
  4. BLOOD PRESSURE MEDICATION [Concomitant]
  5. SEROQUEL [Suspect]
     Route: 048
  6. SEROQUEL [Suspect]
     Route: 048
  7. THYROID MEDICATION [Concomitant]
  8. CHOLESTEROL MEDICATION [Concomitant]
  9. SEROQUEL [Suspect]
     Route: 048
  10. SEROQUEL [Suspect]
     Route: 048
  11. SEROQUEL [Suspect]
     Route: 048
  12. OXYCODONE HCL [Concomitant]
     Indication: PAIN

REACTIONS (8)
  - MENTAL DISORDER [None]
  - DRUG DOSE OMISSION [None]
  - ANXIETY [None]
  - ADVERSE EVENT [None]
  - ARTHRITIS [None]
  - MUSCULOSKELETAL PAIN [None]
  - OFF LABEL USE [None]
  - DYSKINESIA [None]
